FAERS Safety Report 8732962 (Version 2)
Quarter: 2013Q1

REPORT INFORMATION
  Report Type: Spontaneous
  Country: CN (occurrence: CN)
  Receive Date: 20120820
  Receipt Date: 20130315
  Transmission Date: 20140127
  Serious: Yes (Other)
  Sender: FDA-Public Use
  Company Number: CN-JHP PHARMACEUTICALS, LLC-JHP201200407

PATIENT
  Age: 25 Year
  Sex: Male

DRUGS (1)
  1. KETALAR [Suspect]
     Indication: DRUG ABUSE
     Dosage: UNK

REACTIONS (4)
  - Cystitis interstitial [Recovered/Resolved]
  - Hydronephrosis [Recovered/Resolved]
  - Alanine aminotransferase increased [Unknown]
  - Ureteric stenosis [Recovered/Resolved]
